FAERS Safety Report 18625062 (Version 3)
Quarter: 2021Q1

REPORT INFORMATION
  Report Type: Spontaneous
  Country: US (occurrence: US)
  Receive Date: 20201216
  Receipt Date: 20210112
  Transmission Date: 20210419
  Serious: No
  Sender: FDA-Public Use
  Company Number: US-UNITED THERAPEUTICS-UNT-2020-019748

PATIENT
  Sex: Female
  Weight: 59.86 kg

DRUGS (5)
  1. REMODULIN [Suspect]
     Active Substance: TREPROSTINIL
     Indication: PULMONARY ARTERIAL HYPERTENSION
     Dosage: UNK, CONTINUING
     Route: 058
     Dates: start: 20190621
  2. REMODULIN [Suspect]
     Active Substance: TREPROSTINIL
     Dosage: 0.050 ?G/KG, CONTINUING
     Route: 058
  3. ELIQUIS [Concomitant]
     Active Substance: APIXABAN
     Indication: PRODUCT USED FOR UNKNOWN INDICATION
     Dosage: UNK
     Route: 065
  4. REMODULIN [Suspect]
     Active Substance: TREPROSTINIL
     Dosage: UNK, CONTINUING
     Route: 058
  5. REMODULIN [Suspect]
     Active Substance: TREPROSTINIL
     Dosage: UNK, CONTINUING (AT A RATE OF 0.286)
     Route: 058

REACTIONS (15)
  - Stress [Unknown]
  - Device use issue [Unknown]
  - Dyspnoea [Unknown]
  - Depression [Unknown]
  - Hyperventilation [Unknown]
  - Device programming error [Unknown]
  - Anxiety [Unknown]
  - Therapy interrupted [Unknown]
  - Incorrect drug administration rate [Unknown]
  - Crying [Unknown]
  - Tension [Unknown]
  - Frustration tolerance decreased [Unknown]
  - Fatigue [Unknown]
  - Pain [Unknown]
  - Product label confusion [Unknown]

NARRATIVE: CASE EVENT DATE: 2020
